FAERS Safety Report 6937342-1 (Version None)
Quarter: 2010Q3

REPORT INFORMATION
  Report Type: 
  Country: None (occurrence: None)
  Receive Date: 20100823
  Receipt Date: 20100818
  Transmission Date: 20110219
  Serious: Yes (Hospitalization)
  Sender: FDA-Public Use
  Company Number: ES-ROXANE LABORATORIES, INC.-2010-RO-01109RO

PATIENT
  Age: 70 Year
  Sex: Female
  Weight: 70 kg

DRUGS (6)
  1. RAMIPRIL [Suspect]
     Indication: HYPERTENSION
     Dosage: 5 MG
  2. METFORMIN [Suspect]
     Dosage: 1275 MG
  3. AMILORIDE HCL AND HYDROCHLOROTHIAZIDE [Suspect]
  4. GLUCOSAMINE [Suspect]
     Dosage: 1500 MG
  5. TRIMETAZIDINE [Suspect]
     Dosage: 60 MG
  6. ACENOCOUMAROL [Suspect]

REACTIONS (1)
  - INAPPROPRIATE ANTIDIURETIC HORMONE SECRETION [None]
